FAERS Safety Report 11145709 (Version 1)
Quarter: 2015Q2

REPORT INFORMATION
  Report Type: Spontaneous
  Country: US (occurrence: None)
  Receive Date: 20150527
  Receipt Date: 20150527
  Transmission Date: 20150821
  Serious: No
  Sender: FDA-Public Use
  Company Number: None

PATIENT
  Age: 76 Year
  Sex: Male

DRUGS (2)
  1. ENOXAPARIN (GENERIC) [Suspect]
     Active Substance: ENOXAPARIN
     Indication: PULMONARY EMBOLISM
     Dosage: 120 MG BID SQ?
     Route: 058
     Dates: start: 20150313, end: 20150324
  2. ENOXAPARIN (GENERIC) [Suspect]
     Active Substance: ENOXAPARIN
     Indication: DEEP VEIN THROMBOSIS
     Dosage: 120 MG BID SQ?
     Route: 058
     Dates: start: 20150313, end: 20150324

REACTIONS (2)
  - Erythema multiforme [None]
  - Injection site reaction [None]

NARRATIVE: CASE EVENT DATE: 20150324
